FAERS Safety Report 13996202 (Version 1)
Quarter: 2017Q3

REPORT INFORMATION
  Report Type: Spontaneous
  Country: IN (occurrence: IN)
  Receive Date: 20170921
  Receipt Date: 20170921
  Transmission Date: 20171128
  Serious: Yes (Other)
  Sender: FDA-Public Use
  Company Number: IN-CONCORDIA PHARMACEUTICALS INC.-GSH201709-005392

PATIENT
  Age: 28 Year
  Sex: Female

DRUGS (5)
  1. ACITROM [Suspect]
     Active Substance: ACENOCOUMAROL
     Indication: CORONARY ARTERY DISEASE
  2. FUROSEMIDE. [Suspect]
     Active Substance: FUROSEMIDE
     Indication: CORONARY ARTERY DISEASE
  3. CIPROFLOXACIN. [Concomitant]
     Active Substance: CIPROFLOXACIN
     Indication: ANTIBIOTIC THERAPY
  4. DIGOXIN. [Suspect]
     Active Substance: DIGOXIN
     Indication: CORONARY ARTERY DISEASE
  5. TINIDAZOLE. [Concomitant]
     Active Substance: TINIDAZOLE
     Indication: ANTIBIOTIC THERAPY

REACTIONS (1)
  - Gingival hypertrophy [Recovered/Resolved]
